FAERS Safety Report 18056743 (Version 1)
Quarter: 2020Q3

REPORT INFORMATION
  Report Type: Spontaneous
  Country: US (occurrence: US)
  Receive Date: 20200722
  Receipt Date: 20200722
  Transmission Date: 20201103
  Serious: No
  Sender: FDA-Public Use
  Company Number: US-CELGENEUS-USA-20200705537

PATIENT
  Sex: Female
  Weight: 51.3 kg

DRUGS (5)
  1. REVLIMID [Suspect]
     Active Substance: LENALIDOMIDE
     Dosage: 25?15 MG
     Route: 048
     Dates: start: 201201
  2. REVLIMID [Suspect]
     Active Substance: LENALIDOMIDE
     Dosage: 10 ? 25 MG
     Route: 048
     Dates: start: 201205
  3. REVLIMID [Suspect]
     Active Substance: LENALIDOMIDE
     Dosage: 10 ? 25 MG
     Route: 048
     Dates: start: 201205
  4. REVLIMID [Suspect]
     Active Substance: LENALIDOMIDE
     Indication: PLASMA CELL MYELOMA RECURRENT
     Dosage: 25 MILLIGRAM
     Route: 048
     Dates: start: 201004
  5. REVLIMID [Suspect]
     Active Substance: LENALIDOMIDE
     Dosage: 10 MILLIGRAM
     Route: 048
     Dates: start: 201511

REACTIONS (1)
  - Adverse drug reaction [Unknown]
